FAERS Safety Report 9704171 (Version 1)
Quarter: 2013Q4

REPORT INFORMATION
  Report Type: Spontaneous
  Country: US (occurrence: US)
  Receive Date: 20131122
  Receipt Date: 20131122
  Transmission Date: 20140711
  Serious: No
  Sender: FDA-Public Use
  Company Number: US-GLAXOSMITHKLINE-A1040444A

PATIENT
  Age: 30 Year
  Sex: Male

DRUGS (4)
  1. BUPROPION HYDROCHLORIDE [Suspect]
     Indication: DEPRESSION
     Dosage: 1TAB TWICE PER DAY
     Route: 048
     Dates: start: 2012, end: 2012
  2. PROZAC [Concomitant]
  3. AMBIEN [Concomitant]
  4. KLONOPIN [Concomitant]

REACTIONS (2)
  - Abdominal pain upper [Recovered/Resolved]
  - Diarrhoea [Unknown]
